FAERS Safety Report 17931280 (Version 2)
Quarter: 2020Q2

REPORT INFORMATION
  Report Type: Spontaneous
  Country: NL (occurrence: NL)
  Receive Date: 20200623
  Receipt Date: 20200624
  Transmission Date: 20200714
  Serious: Yes (Other)
  Sender: FDA-Public Use
  Company Number: NL-JNJFOC-20200623618

PATIENT

DRUGS (10)
  1. LANSOPRAZOLE. [Concomitant]
     Active Substance: LANSOPRAZOLE
  2. ACETYLSALICYLIC ACID [Concomitant]
     Active Substance: ASPIRIN
  3. SYMBICORT [Concomitant]
     Active Substance: BUDESONIDE\FORMOTEROL FUMARATE DIHYDRATE
  4. ALPRAZOLAM. [Concomitant]
     Active Substance: ALPRAZOLAM
  5. MIRTAZAPINE. [Concomitant]
     Active Substance: MIRTAZAPINE
  6. STELARA [Suspect]
     Active Substance: USTEKINUMAB
     Indication: PSORIASIS
     Route: 058
     Dates: start: 201309
  7. PERINDOPRIL [Concomitant]
     Active Substance: PERINDOPRIL
  8. FUROSEMIDE. [Concomitant]
     Active Substance: FUROSEMIDE
  9. COLECALCIFEROL [Concomitant]
     Active Substance: CHOLECALCIFEROL
  10. DOVOBET [Concomitant]
     Active Substance: BETAMETHASONE\CALCIPOTRIENE

REACTIONS (2)
  - Trigeminal nerve disorder [Recovered/Resolved]
  - Facial nerve disorder [Recovered/Resolved]

NARRATIVE: CASE EVENT DATE: 20200420
